FAERS Safety Report 5192230-9 (Version None)
Quarter: 2006Q4

REPORT INFORMATION
  Report Type: 
  Country: None (occurrence: None)
  Receive Date: 20061220
  Receipt Date: 20061212
  Transmission Date: 20070319
  Serious: Yes (Other)
  Sender: FDA-Public Use
  Company Number: 2006RL000439

PATIENT
  Sex: Female

DRUGS (1)
  1. OMACOR [Suspect]
     Indication: RETINAL VASCULAR THROMBOSIS
     Dosage: PO
     Route: 048

REACTIONS (1)
  - NO ADVERSE DRUG EFFECT [None]
